FAERS Safety Report 4861018-8 (Version None)
Quarter: 2005Q4

REPORT INFORMATION
  Report Type: 
  Country: None (occurrence: None)
  Receive Date: 20051220
  Receipt Date: 20051021
  Transmission Date: 20060501
  Serious: No
  Sender: FDA-Public Use
  Company Number: US-GLAXOSMITHKLINE-A0579159A

PATIENT
  Age: 53 Year
  Sex: Male

DRUGS (1)
  1. TAGAMET [Suspect]
     Indication: ULCER
     Route: 048

REACTIONS (1)
  - HYPERTROPHY BREAST [None]
